FAERS Safety Report 9070914 (Version 4)
Quarter: 2013Q2

REPORT INFORMATION
  Report Type: Spontaneous
  Country: US (occurrence: US)
  Receive Date: 20130129
  Receipt Date: 20130403
  Transmission Date: 20140414
  Serious: Yes (Disabling)
  Sender: FDA-Public Use
  Company Number: US-GLAXOSMITHKLINE-A1009172A

PATIENT
  Age: 61 Year
  Sex: Male

DRUGS (12)
  1. VOTRIENT [Suspect]
     Indication: RENAL CELL CARCINOMA
     Dosage: 400MG PER DAY
     Route: 048
     Dates: start: 20130111, end: 20130228
  2. REGLAN [Concomitant]
  3. PANTOPRAZOLE [Concomitant]
  4. DILTIAZEM [Concomitant]
  5. HYDROXYZINE [Concomitant]
  6. HYDROCODONE [Concomitant]
  7. NITROGLYCERINE [Concomitant]
  8. OXYBUTYNIN [Concomitant]
  9. PROCHLORPERAZINE [Concomitant]
  10. SPIRONOLACTONE [Concomitant]
  11. LASIX [Concomitant]
  12. PRILOSEC [Concomitant]

REACTIONS (7)
  - Renal cancer [Not Recovered/Not Resolved]
  - Myalgia [Not Recovered/Not Resolved]
  - Fatigue [Not Recovered/Not Resolved]
  - Pain [Not Recovered/Not Resolved]
  - Restlessness [Not Recovered/Not Resolved]
  - Headache [Not Recovered/Not Resolved]
  - Drug ineffective [Not Recovered/Not Resolved]
